FAERS Safety Report 8850877 (Version 2)
Quarter: 2012Q4

REPORT INFORMATION
  Report Type: 
  Country: US (occurrence: US)
  Receive Date: 20121019
  Receipt Date: 20121028
  Transmission Date: 20130627
  Serious: No
  Sender: FDA-Public Use
  Company Number: US-BAYER-2012-109468

PATIENT
  Age: 14 Year

DRUGS (4)
  1. ALEVE CAPLET/TABLET,MIDOL EXTENDED RELIEF CAPLET [Suspect]
     Dosage: 1100 mg, UNK
     Route: 048
  2. MELATONIN [Concomitant]
     Dosage: 10 mg, UNK
  3. IMITREX [Concomitant]
     Dosage: 25 mg, UNK
  4. AMITRIPTYLINE [Concomitant]
     Dosage: 30 UNK, UNK

REACTIONS (1)
  - Memory impairment [None]
